FAERS Safety Report 14456193 (Version 4)
Quarter: 2019Q3

REPORT INFORMATION
  Report Type: Spontaneous
  Country: GR (occurrence: GR)
  Receive Date: 20180130
  Receipt Date: 20190812
  Transmission Date: 20191004
  Serious: Yes (Death, Hospitalization, Other)
  Sender: FDA-Public Use
  Company Number: GR-009507513-1801GRC013225

PATIENT
  Age: 30 Year
  Sex: Female

DRUGS (1)
  1. KEYTRUDA [Suspect]
     Active Substance: PEMBROLIZUMAB
     Indication: THYMOMA
     Dosage: UNK
     Route: 042

REACTIONS (11)
  - Myositis [Recovering/Resolving]
  - Respiratory disorder [Unknown]
  - Ophthalmoplegia [Recovering/Resolving]
  - Septic shock [Fatal]
  - Transaminases increased [Recovering/Resolving]
  - Respiratory failure [Recovering/Resolving]
  - Immune-mediated adverse reaction [Recovering/Resolving]
  - Myocarditis [Recovering/Resolving]
  - Myasthenia gravis [Unknown]
  - Diplopia [Recovering/Resolving]
  - Product use in unapproved indication [Unknown]

NARRATIVE: CASE EVENT DATE: 20180319
